FAERS Safety Report 17395679 (Version 2)
Quarter: 2020Q1

REPORT INFORMATION
  Report Type: Report from Study
  Country: US (occurrence: US)
  Receive Date: 20200210
  Receipt Date: 20200214
  Transmission Date: 20200409
  Serious: Yes (Hospitalization)
  Sender: FDA-Public Use
  Company Number: US-PHARMING-PHAUS2020000032

PATIENT

DRUGS (2)
  1. RUCONEST [Suspect]
     Active Substance: HUMAN C1-ESTERASE INHIBITOR
     Indication: DELAYED GRAFT FUNCTION
     Dosage: 8400 IU INTERNATIONAL UNIT(S), SINGLE
     Route: 042
     Dates: start: 20200123, end: 20200123
  2. RUCONEST [Suspect]
     Active Substance: HUMAN C1-ESTERASE INHIBITOR
     Dosage: 4200 IU INTERNATIONAL UNIT(S), 2X
     Route: 042
     Dates: start: 20200124, end: 20200124

REACTIONS (5)
  - Intentional product misuse [Recovered/Resolved]
  - Swelling [Unknown]
  - Product use in unapproved indication [Recovered/Resolved]
  - Haemorrhage [Unknown]
  - Haematoma [Recovered/Resolved]

NARRATIVE: CASE EVENT DATE: 20200131
